FAERS Safety Report 7122226-9 (Version None)
Quarter: 2010Q4

REPORT INFORMATION
  Report Type: 
  Country: None (occurrence: None)
  Receive Date: 20101119
  Receipt Date: 20101119
  Transmission Date: 20110411
  Serious: Yes (Hospitalization)
  Sender: FDA-Public Use
  Company Number: None

PATIENT
  Age: 70 Year
  Sex: Female

DRUGS (1)
  1. NITROFURANTOIN [Suspect]
     Dosage: UNKNOWN UNKNOWN ORAL (PO)
     Route: 048
     Dates: start: 20101022, end: 20101022

REACTIONS (5)
  - CHEST PAIN [None]
  - DYSPNOEA [None]
  - RASH ERYTHEMATOUS [None]
  - SWOLLEN TONGUE [None]
  - URTICARIA [None]
